FAERS Safety Report 6019857-6 (Version None)
Quarter: 2008Q4

REPORT INFORMATION
  Report Type: 
  Country: None (occurrence: None)
  Receive Date: 20081224
  Receipt Date: 20081219
  Transmission Date: 20090506
  Serious: Yes (Other)
  Sender: FDA-Public Use
  Company Number: US-GENENTECH-274305

PATIENT
  Sex: Female

DRUGS (6)
  1. OMALIZUMAB [Suspect]
     Indication: ASTHMA
     Dosage: UNK
  2. PREDNISONE [Concomitant]
     Indication: GASTROENTERITIS
     Dosage: UNK
  3. ZOLOFT [Concomitant]
     Indication: ANXIETY
     Dosage: UNK
  4. BIRTH CONTROL PILLS (UNK INGREDIENTS) [Concomitant]
     Indication: CONTRACEPTION
     Dosage: UNK
  5. AMBIEN [Concomitant]
     Indication: DRUG USE FOR UNKNOWN INDICATION
  6. ALBUTEROL [Concomitant]
     Indication: DRUG USE FOR UNKNOWN INDICATION
     Dosage: UNK

REACTIONS (1)
  - PANCREATITIS [None]
